FAERS Safety Report 7910752-1 (Version None)
Quarter: 2011Q4

REPORT INFORMATION
  Report Type: 
  Country: None (occurrence: None)
  Receive Date: 20111112
  Receipt Date: 20111104
  Transmission Date: 20120403
  Serious: Yes (Other)
  Sender: FDA-Public Use
  Company Number: US-ASTRAZENECA-2011SE67249

PATIENT
  Age: 75 Year
  Sex: Female

DRUGS (1)
  1. NEXIUM [Suspect]
     Route: 048

REACTIONS (6)
  - PNEUMONIA [None]
  - CATARACT [None]
  - BLINDNESS UNILATERAL [None]
  - OROPHARYNGEAL PAIN [None]
  - BRONCHITIS [None]
  - HYPERTENSION [None]
